FAERS Safety Report 5309914-1 (Version None)
Quarter: 2007Q2

REPORT INFORMATION
  Report Type: 
  Country: None (occurrence: None)
  Receive Date: 20070427
  Receipt Date: 20070419
  Transmission Date: 20071010
  Serious: Yes (Hospitalization)
  Sender: FDA-Public Use
  Company Number: US-ELI_LILLY_AND_COMPANY-US200704004509

PATIENT
  Age: 60 Year
  Sex: Female
  Weight: 56.8 kg

DRUGS (8)
  1. GEMZAR [Suspect]
     Indication: BREAST CANCER METASTATIC
     Dosage: 1500 MG/M2, UNK
     Route: 042
     Dates: start: 20070410
  2. BEVACIZUMAB [Concomitant]
     Indication: BREAST CANCER METASTATIC
     Dosage: 10 MG/M2, UNK
     Route: 042
     Dates: start: 20061212
  3. PACLITAXEL [Concomitant]
     Indication: BREAST CANCER METASTATIC
     Dosage: 90 MG/M2, UNK
     Route: 042
     Dates: start: 20061212
  4. MORPHINE [Concomitant]
     Indication: PAIN
     Dates: start: 20061116
  5. PHENERGAN HCL [Concomitant]
     Indication: NAUSEA
     Dates: start: 20061217
  6. COUMADIN [Concomitant]
     Dates: start: 20070109
  7. SENOKOT [Concomitant]
     Indication: CONSTIPATION
     Dates: start: 20061116
  8. DEXAMETHASONE [Concomitant]
     Dates: start: 20061212

REACTIONS (1)
  - SMALL INTESTINAL OBSTRUCTION [None]
